FAERS Safety Report 12793776 (Version 1)
Quarter: 2016Q3

REPORT INFORMATION
  Report Type: Spontaneous
  Country: US (occurrence: US)
  Receive Date: 20160929
  Receipt Date: 20160929
  Transmission Date: 20161109
  Serious: No
  Sender: FDA-Public Use
  Company Number: US-JAZZ-2016-US-011651

PATIENT
  Sex: Female

DRUGS (23)
  1. ADDERALL XR [Concomitant]
     Active Substance: AMPHETAMINE ASPARTATE\AMPHETAMINE SULFATE\DEXTROAMPHETAMINE SACCHARATE\DEXTROAMPHETAMINE SULFATE
  2. LIDODERM [Concomitant]
     Active Substance: LIDOCAINE
  3. ADDERALL [Concomitant]
     Active Substance: AMPHETAMINE ASPARTATE\AMPHETAMINE SULFATE\DEXTROAMPHETAMINE SACCHARATE\DEXTROAMPHETAMINE SULFATE
  4. ALBUTEROL. [Concomitant]
     Active Substance: ALBUTEROL
  5. FLONASE ALLERGY RLF [Concomitant]
  6. TIZANIDINE HCL [Concomitant]
     Active Substance: TIZANIDINE HYDROCHLORIDE
  7. CYMBALTA [Concomitant]
     Active Substance: DULOXETINE HYDROCHLORIDE
  8. VITAMINS [Concomitant]
     Active Substance: VITAMINS
  9. AUGMENTIN [Concomitant]
     Active Substance: AMOXICILLIN\CLAVULANATE POTASSIUM
  10. PROVIGIL [Concomitant]
     Active Substance: MODAFINIL
  11. NAPROXEN SODIUM. [Concomitant]
     Active Substance: NAPROXEN SODIUM
  12. NECON [Concomitant]
     Active Substance: ETHINYL ESTRADIOL\NORETHINDRONE
  13. NEURONTIN [Concomitant]
     Active Substance: GABAPENTIN
  14. PRAVASTATIN SODIUM. [Concomitant]
     Active Substance: PRAVASTATIN SODIUM
  15. FLUDROCORTISONE [Concomitant]
     Active Substance: FLUDROCORTISONE
  16. VALIUM [Concomitant]
     Active Substance: DIAZEPAM
  17. OVCON [Concomitant]
  18. XYREM [Suspect]
     Active Substance: SODIUM OXYBATE
     Dosage: DOSE ADJUSTMENTS
     Route: 048
     Dates: start: 201004, end: 201005
  19. TOPAMAX [Concomitant]
     Active Substance: TOPIRAMATE
  20. DETROL LA [Concomitant]
     Active Substance: TOLTERODINE TARTRATE
  21. XYREM [Suspect]
     Active Substance: SODIUM OXYBATE
     Indication: NARCOLEPSY
     Dosage: 2.25 G, BID
     Route: 048
     Dates: start: 201003, end: 201004
  22. XYREM [Suspect]
     Active Substance: SODIUM OXYBATE
     Dosage: 4.5 G, BID
     Route: 048
     Dates: start: 201005
  23. MIDODRINE HCL [Concomitant]
     Active Substance: MIDODRINE HYDROCHLORIDE

REACTIONS (6)
  - Atypical pneumonia [Unknown]
  - Headache [Unknown]
  - Pain [Unknown]
  - Dizziness [Unknown]
  - Feeling hot [Unknown]
  - Hypersensitivity [Unknown]
